FAERS Safety Report 6266901-7 (Version None)
Quarter: 2009Q3

REPORT INFORMATION
  Report Type: 
  Country: None (occurrence: None)
  Receive Date: 20090710
  Receipt Date: 20090710
  Transmission Date: 20100115
  Serious: Yes (Other)
  Sender: FDA-Public Use
  Company Number: None

PATIENT
  Sex: Male
  Weight: 55.1 kg

DRUGS (1)
  1. CARBOPLATIN [Suspect]
     Indication: TESTIS CANCER
     Dosage: 700MG/M2=1400MG DAILY IV
     Route: 042
     Dates: start: 20090527, end: 20090529

REACTIONS (2)
  - ALANINE AMINOTRANSFERASE INCREASED [None]
  - ASPARTATE AMINOTRANSFERASE INCREASED [None]
